FAERS Safety Report 12824756 (Version 2)
Quarter: 2017Q4

REPORT INFORMATION
  Report Type: Report from Study
  Country: US (occurrence: US)
  Receive Date: 20161006
  Receipt Date: 20171004
  Transmission Date: 20180320
  Serious: No
  Sender: FDA-Public Use
  Company Number: US-AMGEN-USASL2016127993

PATIENT
  Age: 68 Year
  Sex: Female
  Weight: 67.12 kg

DRUGS (1)
  1. PROLIA [Suspect]
     Active Substance: DENOSUMAB
     Indication: SENILE OSTEOPOROSIS
     Dosage: UNK
     Route: 058
     Dates: start: 20140227, end: 20150224

REACTIONS (3)
  - Feeling abnormal [Unknown]
  - Hypersensitivity [Unknown]
  - Fibromyalgia [Unknown]

NARRATIVE: CASE EVENT DATE: 2016
